FAERS Safety Report 8973099 (Version 1)
Quarter: 2012Q4

REPORT INFORMATION
  Report Type: 
  Country: US (occurrence: US)
  Receive Date: 20121218
  Receipt Date: 20121218
  Transmission Date: 20130627
  Serious: No
  Sender: FDA-Public Use
  Company Number: US-BRISTOL-MYERS SQUIBB COMPANY-16998940

PATIENT
  Sex: Female
  Weight: 102.04 kg

DRUGS (2)
  1. ABILIFY [Suspect]
     Dosage: Duration of therapy =} 6 months
  2. LUVOX [Suspect]

REACTIONS (2)
  - Weight increased [Unknown]
  - Mental impairment [Unknown]
